FAERS Safety Report 9782993 (Version 1)
Quarter: 2013Q4

REPORT INFORMATION
  Report Type: Spontaneous
  Country: US (occurrence: None)
  Receive Date: 20131224
  Receipt Date: 20131224
  Transmission Date: 20140711
  Serious: Yes (Other)
  Sender: FDA-Public Use
  Company Number: None

PATIENT
  Age: 59 Year
  Sex: Male
  Weight: 136.08 kg

DRUGS (2)
  1. ZICAM COLD REMEDY [Suspect]
     Indication: NASOPHARYNGITIS
     Dosage: 1 TABLET ?EVERY 3 HOURS
     Dates: start: 20131221, end: 20131221
  2. ZICAM COLD REMEDY [Suspect]
     Indication: RHINORRHOEA
     Dosage: 1 TABLET ?EVERY 3 HOURS
     Dates: start: 20131221, end: 20131221

REACTIONS (4)
  - Hypoaesthesia oral [None]
  - Oral mucosal blistering [None]
  - Ageusia [None]
  - Anosmia [None]
